FAERS Safety Report 13065652 (Version 2)
Quarter: 2017Q3

REPORT INFORMATION
  Report Type: Report from Study
  Country: None (occurrence: US)
  Receive Date: 20161227
  Receipt Date: 20170714
  Transmission Date: 20171127
  Serious: Yes (Hospitalization)
  Sender: FDA-Public Use
  Company Number: US-ABBVIE-16K-163-1812260-00

PATIENT
  Age: 40 Year
  Sex: Male

DRUGS (2)
  1. HUMIRA [Suspect]
     Active Substance: ADALIMUMAB
     Indication: RHEUMATOID ARTHRITIS
     Route: 058
  2. PERCOCET [Suspect]
     Active Substance: ACETAMINOPHEN\OXYCODONE HYDROCHLORIDE
     Indication: PAIN
     Route: 065

REACTIONS (15)
  - Hypoaesthesia [Unknown]
  - Injection site pain [Unknown]
  - Fatigue [Unknown]
  - Malaise [Recovering/Resolving]
  - Constipation [Unknown]
  - Pain [Unknown]
  - Pain in extremity [Unknown]
  - Musculoskeletal pain [Unknown]
  - Paraesthesia [Unknown]
  - Fear of injection [Unknown]
  - Insomnia [Unknown]
  - Drug administered at inappropriate site [Unknown]
  - Pancreatitis [Unknown]
  - Rheumatoid arthritis [Unknown]
  - Dry skin [Unknown]

NARRATIVE: CASE EVENT DATE: 201609
